FAERS Safety Report 23399520 (Version 1)
Quarter: 2024Q1

REPORT INFORMATION
  Report Type: Spontaneous
  Country: US (occurrence: US)
  Receive Date: 20240113
  Receipt Date: 20240113
  Transmission Date: 20240410
  Serious: Yes (Other)
  Sender: FDA-Public Use
  Company Number: US-ABBVIE-5586135

PATIENT
  Sex: Female

DRUGS (1)
  1. LUMIGAN [Suspect]
     Active Substance: BIMATOPROST
     Indication: Glaucoma
     Dosage: STRENGTH  0.01%
     Route: 047

REACTIONS (4)
  - Cataract [Unknown]
  - Ocular discomfort [Unknown]
  - Intraocular pressure increased [Unknown]
  - Post procedural complication [Unknown]
